FAERS Safety Report 13679346 (Version 1)
Quarter: 2017Q2

REPORT INFORMATION
  Report Type: Spontaneous
  Country: US (occurrence: US)
  Receive Date: 20170622
  Receipt Date: 20170622
  Transmission Date: 20170830
  Serious: Yes (Other)
  Sender: FDA-Public Use
  Company Number: US-JNJFOC-20170609887

PATIENT
  Sex: Female

DRUGS (1)
  1. BENADRYL [Suspect]
     Active Substance: DIPHENHYDRAMINE HYDROCHLORIDE
     Indication: FEELING ABNORMAL
     Route: 048

REACTIONS (6)
  - Speech disorder [Unknown]
  - Product use in unapproved indication [Unknown]
  - Drug administration error [Unknown]
  - Vision blurred [Unknown]
  - Hypokinesia [Unknown]
  - Feeling abnormal [Unknown]
